FAERS Safety Report 6990739-6 (Version None)
Quarter: 2010Q3

REPORT INFORMATION
  Report Type: 
  Country: None (occurrence: None)
  Receive Date: 20100916
  Receipt Date: 20100720
  Transmission Date: 20110219
  Serious: Yes (Other)
  Sender: FDA-Public Use
  Company Number: US-PFIZER INC-2010091420

PATIENT
  Sex: Female
  Weight: 56 kg

DRUGS (2)
  1. LYRICA [Suspect]
     Indication: MUSCLE DISORDER
     Dosage: 50 MG, 2X/DAY
     Route: 048
     Dates: start: 20100608, end: 20100720
  2. CARBIDOPA AND LEVODOPA [Concomitant]
     Indication: PARKINSON'S DISEASE
     Dosage: UNK, 2X/DAY

REACTIONS (5)
  - BACK PAIN [None]
  - DECREASED APPETITE [None]
  - MUSCLE STRAIN [None]
  - SOMNOLENCE [None]
  - WEIGHT INCREASED [None]
